FAERS Safety Report 9535841 (Version 1)
Quarter: 2013Q2

REPORT INFORMATION
  Report Type: Spontaneous
  Country: US (occurrence: None)
  Receive Date: 20130507
  Receipt Date: 20130507
  Transmission Date: 20140414
  Serious: Yes (Other)
  Sender: FDA-Public Use
  Company Number: PHEH2012US024666

PATIENT
  Sex: 0

DRUGS (1)
  1. AFINITOR ( RAD) UNKNOWN [Suspect]
     Route: 048

REACTIONS (4)
  - Mucosal inflammation [None]
  - Malaise [None]
  - Fatigue [None]
  - Weight decreased [None]
